FAERS Safety Report 11442481 (Version 1)
Quarter: 2015Q3

REPORT INFORMATION
  Report Type: Spontaneous
  Country: US (occurrence: US)
  Receive Date: 20150901
  Receipt Date: 20150901
  Transmission Date: 20151125
  Serious: Yes (Hospitalization, Other)
  Sender: FDA-Public Use
  Company Number: US-ELI_LILLY_AND_COMPANY-US201508007700

PATIENT
  Age: 19 Year
  Sex: Female
  Weight: 56 kg

DRUGS (9)
  1. LETAIRIS [Concomitant]
     Active Substance: AMBRISENTAN
     Dosage: 10 MG, QD
     Route: 048
     Dates: start: 20150810
  2. ACETAMINOPHEN. [Concomitant]
     Active Substance: ACETAMINOPHEN
     Dosage: 325 MG, TID
     Route: 048
  3. ADCIRCA [Suspect]
     Active Substance: TADALAFIL
     Indication: PULMONARY ARTERIAL HYPERTENSION
     Dosage: 20 MG, QD
     Route: 048
     Dates: start: 20150718
  4. ZOLPIDEM [Concomitant]
     Active Substance: ZOLPIDEM\ZOLPIDEM TARTRATE
     Dosage: 5 MG, PRN
     Route: 048
     Dates: start: 20150718
  5. TYVASO [Concomitant]
     Active Substance: TREPROSTINIL
     Dosage: 18 UG, 4 TIMES DAILY
     Route: 055
     Dates: start: 20150810
  6. ZOLOFT [Concomitant]
     Active Substance: SERTRALINE HYDROCHLORIDE
     Dosage: 50 MG, EACH EVENING
     Route: 048
  7. PRENATAL                           /00231801/ [Concomitant]
     Dosage: UNK, QD
     Route: 048
  8. ADCIRCA [Suspect]
     Active Substance: TADALAFIL
     Dosage: 5 MG, QD
     Route: 048
  9. ZOLOFT [Concomitant]
     Active Substance: SERTRALINE HYDROCHLORIDE
     Dosage: 25 MG, EACH EVENING
     Route: 048

REACTIONS (4)
  - Septic shock [Not Recovered/Not Resolved]
  - Pulmonary embolism [Not Recovered/Not Resolved]
  - Cardiac failure [Not Recovered/Not Resolved]
  - Pyelonephritis [Not Recovered/Not Resolved]

NARRATIVE: CASE EVENT DATE: 20150822
